FAERS Safety Report 5035562-7 (Version None)
Quarter: 2006Q2

REPORT INFORMATION
  Report Type: 
  Country: None (occurrence: None)
  Receive Date: 20060526
  Receipt Date: 20060426
  Transmission Date: 20061013
  Serious: No
  Sender: FDA-Public Use
  Company Number: FABR-11022

PATIENT
  Age: 51 Year
  Sex: Female
  Weight: 62.5964 kg

DRUGS (7)
  1. FABRAZYME [Suspect]
     Indication: FABRY'S DISEASE
     Dosage: 60 MG Q2WKS IV
     Route: 042
     Dates: start: 20050105
  2. FABRAZYME [Suspect]
  3. AMBIEN [Concomitant]
  4. ACETAMINOPHEN [Concomitant]
  5. HYDROXYZINE [Concomitant]
  6. PREDNISONE [Concomitant]
  7. ALBUTEROL SPIROS [Concomitant]

REACTIONS (6)
  - ASTHMA [None]
  - CHILLS [None]
  - EAR INFECTION [None]
  - FATIGUE [None]
  - MALAISE [None]
  - PHARYNGOLARYNGEAL PAIN [None]
